FAERS Safety Report 5337722-4 (Version None)
Quarter: 2007Q2

REPORT INFORMATION
  Report Type: 
  Country: None (occurrence: None)
  Receive Date: 20070315
  Receipt Date: 20060228
  Transmission Date: 20071010
  Serious: Yes (Hospitalization)
  Sender: FDA-Public Use
  Company Number: PHEH2006US02292

PATIENT
  Age: 8 Year
  Sex: Male
  Weight: 43.2 kg

DRUGS (3)
  1. TRILEPTAL [Suspect]
     Indication: CONVULSION
     Dosage: 150 MG, BID, ORAL
     Route: 048
     Dates: start: 20051231, end: 20060111
  2. DILANTIN KAPSEAL [Suspect]
     Indication: CONVULSION
     Dosage: 150 MG, BID, ORAL
     Route: 048
     Dates: start: 20051231, end: 20060111
  3. DEPAKOTE [Concomitant]

REACTIONS (2)
  - RASH MACULAR [None]
  - STEVENS-JOHNSON SYNDROME [None]
